FAERS Safety Report 8436841-3 (Version None)
Quarter: 2012Q2

REPORT INFORMATION
  Report Type: 
  Country: None (occurrence: None)
  Receive Date: 20120614
  Receipt Date: 20120613
  Transmission Date: 20120825
  Serious: Yes (Other)
  Sender: FDA-Public Use
  Company Number: US-BAYER-2012-058899

PATIENT
  Age: 59 Year
  Sex: Male

DRUGS (1)
  1. MAGNEVIST [Suspect]
     Indication: NUCLEAR MAGNETIC RESONANCE IMAGING BRAIN
     Dosage: UNK
     Dates: start: 20120612

REACTIONS (6)
  - URTICARIA [None]
  - DYSPNOEA [None]
  - HEART RATE ABNORMAL [None]
  - OCULAR HYPERAEMIA [None]
  - HYPERSENSITIVITY [None]
  - CYANOSIS [None]
